FAERS Safety Report 20240772 (Version 1)
Quarter: 2021Q4

REPORT INFORMATION
  Report Type: Spontaneous
  Country: US (occurrence: US)
  Receive Date: 20211228
  Receipt Date: 20211228
  Transmission Date: 20220303
  Serious: Yes (Disabling, Other)
  Sender: FDA-Public Use
  Company Number: US-PURDUE-USA-2020-0223745

PATIENT
  Sex: Female

DRUGS (11)
  1. OXYCONTIN [Suspect]
     Active Substance: OXYCODONE HYDROCHLORIDE
     Indication: Back pain
     Dosage: UNKNOWN
     Route: 048
     Dates: start: 2003
  2. OXYCODONE HYDROCHLORIDE [Suspect]
     Active Substance: OXYCODONE HYDROCHLORIDE
     Indication: Back pain
     Dosage: 30 MG, Q4H PRN
     Route: 048
     Dates: start: 2003
  3. OXYCODONE HYDROCHLORIDE [Suspect]
     Active Substance: OXYCODONE HYDROCHLORIDE
     Indication: Back pain
     Dosage: UNKNOWN
     Route: 048
     Dates: start: 2003
  4. DILAUDID [Suspect]
     Active Substance: HYDROMORPHONE HYDROCHLORIDE
     Indication: Back pain
     Dosage: UNKNOWN
     Route: 048
     Dates: start: 2003
  5. HYDROCODONE BITARTRATE AND ACETAMINOPHEN [Suspect]
     Active Substance: ACETAMINOPHEN\HYDROCODONE BITARTRATE
     Indication: Back pain
     Dosage: UNKNOWN
     Route: 048
     Dates: start: 2003
  6. HYDROMORPHONE [Suspect]
     Active Substance: HYDROMORPHONE
     Indication: Back pain
     Dosage: UNKNOWN
     Route: 048
     Dates: start: 2003
  7. HYDROMORPHONE HYDROCHLORIDE [Suspect]
     Active Substance: HYDROMORPHONE HYDROCHLORIDE
     Indication: Back pain
     Dosage: UNKNOWN
     Route: 048
     Dates: start: 2003
  8. MORPHINE SULFATE [Suspect]
     Active Substance: MORPHINE SULFATE
     Indication: Back pain
     Dosage: UNKNOWN
     Route: 048
     Dates: start: 2003
  9. ACETAMINOPHEN\OXYCODONE HYDROCHLORIDE [Suspect]
     Active Substance: ACETAMINOPHEN\OXYCODONE HYDROCHLORIDE
     Indication: Back pain
     Dosage: UNKNOWN
     Route: 048
     Dates: start: 2003
  10. TRAMADOL [Suspect]
     Active Substance: TRAMADOL
     Indication: Back pain
     Dosage: UNKNOWN
     Route: 048
     Dates: start: 2003
  11. OXYCODONE [Suspect]
     Active Substance: OXYCODONE
     Indication: Back pain
     Dosage: UNKNOWN
     Route: 065
     Dates: start: 2003

REACTIONS (4)
  - Overdose [Unknown]
  - Drug dependence [Unknown]
  - Pain [Unknown]
  - Emotional distress [Unknown]
